FAERS Safety Report 9136937 (Version 1)
Quarter: 2013Q1

REPORT INFORMATION
  Report Type: Spontaneous
  Country: US (occurrence: US)
  Receive Date: 20130304
  Receipt Date: 20130304
  Transmission Date: 20140127
  Serious: No
  Sender: FDA-Public Use
  Company Number: US-ABBOTT-12P-163-0912247-00

PATIENT
  Sex: Male
  Weight: 106.69 kg

DRUGS (5)
  1. ANDROGEL 1% [Suspect]
     Indication: BLOOD TESTOSTERONE DECREASED
     Dates: start: 201201
  2. PRAVASTATIN [Concomitant]
     Indication: BLOOD CHOLESTEROL INCREASED
  3. TAMSULOSIN [Concomitant]
     Indication: PROSTATOMEGALY
  4. BENICAR [Concomitant]
     Indication: PROSTATOMEGALY
  5. AVODART [Concomitant]
     Indication: HYPERTENSION

REACTIONS (2)
  - Libido decreased [Not Recovered/Not Resolved]
  - Blood testosterone decreased [Unknown]
